FAERS Safety Report 8107737-1 (Version None)
Quarter: 2012Q1

REPORT INFORMATION
  Report Type: 
  Country: None (occurrence: None)
  Receive Date: 20120202
  Receipt Date: 20120127
  Transmission Date: 20120608
  Serious: Yes (Hospitalization, Other)
  Sender: FDA-Public Use
  Company Number: CL-JNJFOC-20120113713

PATIENT

DRUGS (10)
  1. ITRACONAZOLE [Suspect]
     Indication: SYSTEMIC MYCOSIS
     Route: 048
  2. VORICONAZOLE [Suspect]
     Indication: ASPERGILLOSIS
     Route: 065
  3. AMPHOTERICIN B [Suspect]
     Indication: ASPERGILLOSIS
     Route: 065
  4. CEFTRIAXONE [Suspect]
     Indication: SYSTEMIC MYCOSIS
     Route: 065
  5. AMIKACIN [Suspect]
     Indication: ASPERGILLOSIS
     Route: 065
  6. AMIKACIN [Suspect]
     Indication: SYSTEMIC MYCOSIS
     Route: 065
  7. VORICONAZOLE [Suspect]
     Indication: SYSTEMIC MYCOSIS
     Route: 065
  8. ITRACONAZOLE [Suspect]
     Indication: ASPERGILLOSIS
     Route: 048
  9. CEFTRIAXONE [Suspect]
     Indication: ASPERGILLOSIS
     Route: 065
  10. AMPHOTERICIN B [Suspect]
     Indication: SYSTEMIC MYCOSIS
     Route: 065

REACTIONS (3)
  - ABDOMINAL PAIN UPPER [None]
  - CHOLESTASIS [None]
  - VOMITING [None]
